FAERS Safety Report 7668981-0 (Version None)
Quarter: 2011Q3

REPORT INFORMATION
  Report Type: 
  Country: None (occurrence: None)
  Receive Date: 20110808
  Receipt Date: 20110803
  Transmission Date: 20111222
  Serious: Yes (Other)
  Sender: FDA-Public Use
  Company Number: JP-GLAXOSMITHKLINE-B0737355A

PATIENT
  Sex: Female

DRUGS (7)
  1. GABAPENTIN [Concomitant]
     Dosage: 400MG PER DAY
     Route: 048
     Dates: start: 20110405, end: 20110704
  2. GABAPENTIN [Concomitant]
     Dosage: 200MG PER DAY
     Route: 048
     Dates: start: 20110705
  3. LAMICTAL [Suspect]
     Dosage: 150MG PER DAY
     Route: 048
     Dates: start: 20110114, end: 20110404
  4. GABAPENTIN [Concomitant]
     Indication: EPILEPSY
     Dosage: 1000MG PER DAY
     Route: 048
     Dates: start: 20101224, end: 20110113
  5. GABAPENTIN [Concomitant]
     Dosage: 800MG PER DAY
     Route: 048
     Dates: start: 20110114, end: 20110404
  6. LAMICTAL [Suspect]
     Indication: EPILEPSY
     Dosage: 100MG PER DAY
     Route: 048
     Dates: start: 20101224, end: 20110113
  7. LAMICTAL [Suspect]
     Dosage: 200MG PER DAY
     Route: 048
     Dates: start: 20110405

REACTIONS (1)
  - PUSTULAR PSORIASIS [None]
